FAERS Safety Report 18347242 (Version 1)
Quarter: 2020Q4

REPORT INFORMATION
  Report Type: Spontaneous
  Country: JP (occurrence: JP)
  Receive Date: 20201005
  Receipt Date: 20201005
  Transmission Date: 20210114
  Serious: Yes (Death, Other)
  Sender: FDA-Public Use
  Company Number: JP-ROCHE-2689758

PATIENT
  Age: 69 Year
  Sex: Male

DRUGS (1)
  1. AVASTIN [Suspect]
     Active Substance: BEVACIZUMAB
     Indication: COLON CANCER
     Dosage: ON /MAY/2014, HE RECEIVED MOST RECENT DOSE PRIOR TO EVENT ONSET?DOSAGE UNCERTAIN AND WAS ADMINISTERI
     Route: 041
     Dates: start: 20130418

REACTIONS (2)
  - Death [Fatal]
  - Thrombophlebitis migrans [Unknown]

NARRATIVE: CASE EVENT DATE: 201405
